FAERS Safety Report 23625591 (Version 1)
Quarter: 2024Q1

REPORT INFORMATION
  Report Type: Report from Study
  Country: US (occurrence: None)
  Receive Date: 20240313
  Receipt Date: 20240313
  Transmission Date: 20240410
  Serious: Yes (Other)
  Sender: FDA-Public Use
  Company Number: 2024A058901

PATIENT
  Sex: Male

DRUGS (12)
  1. FASENRA [Suspect]
     Active Substance: BENRALIZUMAB
     Indication: Asthma
     Dosage: 30MG/ML EVERY EIGHT WEEKS
     Route: 058
  2. ALBUTEROL SU AER [Concomitant]
     Dosage: 108 (90
  3. AZELASTINE H [Concomitant]
     Dosage: SOL 0.1%
  4. ENTYVIO [Concomitant]
     Active Substance: VEDOLIZUMAB
     Dosage: SOL 300MG
  5. FINASTERIDE CRY [Concomitant]
  6. FLONASE ALLE [Concomitant]
     Dosage: 50MCG/AC
  7. GABAPENTIN POW [Concomitant]
  8. MONTELUKAST POW [Concomitant]
  9. TAMSULOSINH [Concomitant]
     Dosage: 0.4MG
  10. TRELEGY ELLI [Concomitant]
     Dosage: 100-62.5
  11. VITAMIN B12 [Concomitant]
     Active Substance: CYANOCOBALAMIN
     Dosage: 3000MCG
     Route: 058
  12. VITAMIN C [Concomitant]
     Active Substance: ASCORBIC ACID
     Dosage: 1000MG

REACTIONS (1)
  - Ear disorder [Not Recovered/Not Resolved]
